FAERS Safety Report 5938211-6 (Version None)
Quarter: 2008Q4

REPORT INFORMATION
  Report Type: 
  Country: None (occurrence: None)
  Receive Date: 20081031
  Receipt Date: 20081021
  Transmission Date: 20090506
  Serious: Yes (Hospitalization)
  Sender: FDA-Public Use
  Company Number: US-AMGEN-QUU312559

PATIENT
  Sex: Male

DRUGS (1)
  1. EPOGEN [Suspect]
     Indication: DRUG USE FOR UNKNOWN INDICATION
     Route: 065

REACTIONS (4)
  - KIDNEY TRANSPLANT REJECTION [None]
  - PYREXIA [None]
  - RESPIRATORY DISTRESS [None]
  - WHITE BLOOD CELL COUNT DECREASED [None]
